FAERS Safety Report 17966309 (Version 14)
Quarter: 2022Q4

REPORT INFORMATION
  Report Type: Report from Study
  Country: US (occurrence: US)
  Receive Date: 20200630
  Receipt Date: 20221221
  Transmission Date: 20230112
  Serious: Yes (Other)
  Sender: FDA-Public Use
  Company Number: US-SHIRE-US202021051

PATIENT
  Age: 65 Year
  Sex: Male
  Weight: 76 kg

DRUGS (43)
  1. HUMAN IMMUNOGLOBULIN G [Suspect]
     Active Substance: HUMAN IMMUNOGLOBULIN G
     Indication: Immunodeficiency common variable
     Dosage: 24 GRAM, Q4WEEKS
     Route: 042
     Dates: start: 20180724
  2. HUMAN IMMUNOGLOBULIN G [Suspect]
     Active Substance: HUMAN IMMUNOGLOBULIN G
     Dosage: 25 GRAM, Q4WEEKS
     Route: 042
     Dates: start: 20180724
  3. HUMAN IMMUNOGLOBULIN G [Suspect]
     Active Substance: HUMAN IMMUNOGLOBULIN G
     Dosage: 25 GRAM, Q4WEEKS
     Route: 042
     Dates: start: 20180724
  4. HUMAN IMMUNOGLOBULIN G [Suspect]
     Active Substance: HUMAN IMMUNOGLOBULIN G
     Dosage: 25 GRAM, Q4WEEKS
     Route: 042
     Dates: start: 20180724
  5. COLLAGENASE [Concomitant]
     Active Substance: COLLAGENASE CLOSTRIDIUM HISTOLYTICUM
  6. ACETAMINOPHEN [Concomitant]
     Active Substance: ACETAMINOPHEN
  7. HEPARIN [Concomitant]
     Active Substance: HEPARIN SODIUM
  8. DIPHENHYDRAMINE [Concomitant]
     Active Substance: DIPHENHYDRAMINE
  9. SODIUM CHLORIDE [Concomitant]
     Active Substance: SODIUM CHLORIDE
  10. MAGNESIUM MALATE [Concomitant]
     Active Substance: MAGNESIUM MALATE
  11. EPINEPHRINE [Concomitant]
     Active Substance: EPINEPHRINE
  12. OMEPRAZOLE [Concomitant]
     Active Substance: OMEPRAZOLE
  13. PROTOPIC [Concomitant]
     Active Substance: TACROLIMUS
  14. VENTOLIN [Concomitant]
     Active Substance: ALBUTEROL SULFATE
  15. LIDOCAINE [Concomitant]
     Active Substance: LIDOCAINE
  16. BUDESONIDE [Concomitant]
     Active Substance: BUDESONIDE
  17. ALBUTEROL SULFATE [Concomitant]
     Active Substance: ALBUTEROL SULFATE
  18. TESSALON [Concomitant]
     Active Substance: BENZONATATE
  19. ATORVASTATIN CALCIUM [Concomitant]
     Active Substance: ATORVASTATIN CALCIUM
  20. CYCLOBENZAPRINE [Concomitant]
     Active Substance: CYCLOBENZAPRINE
  21. FOLIC ACID [Concomitant]
     Active Substance: FOLIC ACID
  22. AZELASTINE HYDROCHLORIDE [Concomitant]
     Active Substance: AZELASTINE HYDROCHLORIDE
  23. MUCINEX FAST-MAX COLD AND FLU [Concomitant]
     Active Substance: ACETAMINOPHEN\DEXTROMETHORPHAN HYDROBROMIDE\GUAIFENESIN\PHENYLEPHRINE HYDROCHLORIDE
  24. FLUTICASONE PROPIONATE [Concomitant]
     Active Substance: FLUTICASONE PROPIONATE
  25. ASPIRIN [Concomitant]
     Active Substance: ASPIRIN
  26. LISINOPRIL [Concomitant]
     Active Substance: LISINOPRIL
  27. ZYRTEC [Concomitant]
     Active Substance: CETIRIZINE HYDROCHLORIDE
  28. SPIRIVA [Concomitant]
     Active Substance: TIOTROPIUM BROMIDE MONOHYDRATE
  29. LACTOBACILLUS ACIDOPHILUS [Concomitant]
     Active Substance: LACTOBACILLUS ACIDOPHILUS
  30. BENADRYL [Concomitant]
     Active Substance: DIPHENHYDRAMINE HYDROCHLORIDE
     Route: 065
  31. BREO ELLIPTA [Concomitant]
     Active Substance: FLUTICASONE FUROATE\VILANTEROL TRIFENATATE
     Route: 065
  32. DICLOFENAC POTASSIUM [Concomitant]
     Active Substance: DICLOFENAC POTASSIUM
     Dosage: UNK
  33. FLUZONE QUADRIVALENT NOS [Concomitant]
     Active Substance: INFLUENZA A VIRUS A/CALIFORNIA/7/2009 X-179A (H1N1) ANTIGEN (FORMALDEHYDE INACTIVATED)\INFLUENZA A V
     Dosage: UNK
  34. ZINC [Concomitant]
     Active Substance: ZINC
     Dosage: UNK
  35. CALCIUM [Concomitant]
     Active Substance: CALCIUM
     Dosage: UNK
  36. MAGNESIUM [Concomitant]
     Active Substance: MAGNESIUM
     Dosage: UNK
  37. ALBUTEROL SULFATE [Concomitant]
     Active Substance: ALBUTEROL SULFATE
  38. ALBUTEROL [Concomitant]
     Active Substance: ALBUTEROL
  39. ATORVASTATIN [Concomitant]
     Active Substance: ATORVASTATIN
  40. AZELASTINE [Concomitant]
     Active Substance: AZELASTINE
  41. MUCINEX [Concomitant]
     Active Substance: GUAIFENESIN
  42. FLUTICASONE [Concomitant]
     Active Substance: FLUTICASONE
  43. CODEINE SULFATE [Concomitant]
     Active Substance: CODEINE SULFATE

REACTIONS (23)
  - Diverticulitis [Recovering/Resolving]
  - Respiratory tract infection [Unknown]
  - Syncope [Unknown]
  - Colitis [Unknown]
  - Fall [Unknown]
  - Nerve compression [Unknown]
  - Neck pain [Unknown]
  - Seasonal allergy [Recovering/Resolving]
  - Productive cough [Recovering/Resolving]
  - Bronchitis [Unknown]
  - Influenza [Unknown]
  - Sinusitis [Recovering/Resolving]
  - Pyrexia [Unknown]
  - Diarrhoea [Unknown]
  - Headache [Unknown]
  - Back pain [Unknown]
  - Nausea [Unknown]
  - Dizziness [Unknown]
  - Fatigue [Recovering/Resolving]
  - Pain in extremity [Unknown]
  - Arthralgia [Unknown]
  - Chills [Recovering/Resolving]
  - Asthma [Recovering/Resolving]

NARRATIVE: CASE EVENT DATE: 20211009
